FAERS Safety Report 26098922 (Version 2)
Quarter: 2025Q4

REPORT INFORMATION
  Report Type: Report from Study
  Country: GB (occurrence: GB)
  Receive Date: 20251127
  Receipt Date: 20251202
  Transmission Date: 20260117
  Serious: Yes (Other)
  Sender: ABBVIE
  Company Number: GB-ABBVIE-6567239

PATIENT
  Age: 28 Year
  Sex: Male

DRUGS (1)
  1. RINVOQ [Suspect]
     Active Substance: UPADACITINIB
     Indication: Dermatitis atopic
     Dosage: FORM STRENGTH: RINVOQ 30MG
     Route: 048

REACTIONS (3)
  - Eye operation [Recovering/Resolving]
  - General physical health deterioration [Unknown]
  - Nervousness [Unknown]

NARRATIVE: CASE EVENT DATE: 20250101
